FAERS Safety Report 4333890-1 (Version None)
Quarter: 2004Q2

REPORT INFORMATION
  Report Type: 
  Country: None (occurrence: None)
  Receive Date: 20040402
  Receipt Date: 20040324
  Transmission Date: 20050107
  Serious: Yes (Hospitalization)
  Sender: FDA-Public Use
  Company Number: 2003-10-3310

PATIENT
  Age: 71 Year
  Sex: Male

DRUGS (5)
  1. FLUTAMIDE [Suspect]
     Indication: PROSTATE CANCER
     Dosage: ORAL
     Route: 048
     Dates: start: 20030601
  2. NITRENDIPINE [Concomitant]
  3. EMEDASTINE DIFUMARATE [Concomitant]
  4. SODIUM PICOSULFATE [Concomitant]
  5. GOSERELIN ACETATE [Concomitant]

REACTIONS (5)
  - CARDIAC FIBRILLATION [None]
  - CHEST PAIN [None]
  - ELECTROCARDIOGRAM ST SEGMENT DEPRESSION [None]
  - FEELING ABNORMAL [None]
  - PALPITATIONS [None]
